FAERS Safety Report 9741414 (Version 2)
Quarter: 2014Q1

REPORT INFORMATION
  Report Type: Spontaneous
  Country: US (occurrence: US)
  Receive Date: 20131209
  Receipt Date: 20140204
  Transmission Date: 20141002
  Serious: Yes (Other)
  Sender: FDA-Public Use
  Company Number: PHEH2013US024996

PATIENT
  Sex: Female

DRUGS (16)
  1. GILENYA [Suspect]
     Route: 048
  2. LOTENSIN [Concomitant]
     Indication: BLOOD PRESSURE ABNORMAL
     Dosage: 40 MG, UNK
  3. XANAX [Concomitant]
     Indication: ANXIETY
     Dosage: 1 MG, UNK
  4. PRAVASTATIN SODIUM [Concomitant]
  5. ASPIRIN [Concomitant]
     Dosage: 81 MG, BID
  6. IBUPROFEN [Concomitant]
     Dosage: 80 MG, TID
  7. ZANTAC [Concomitant]
     Dosage: 150 MG, BID
  8. TRAZODONE [Concomitant]
  9. LORTAB [Concomitant]
  10. PROZAC [Concomitant]
     Indication: DEPRESSION
     Dosage: 80 MG, QD
  11. KLONOPIN [Concomitant]
     Dosage: 2 MG, QD
  12. ROBAXIN [Concomitant]
     Dosage: 500 MG, PRN
  13. NORVASC [Concomitant]
     Indication: BLOOD PRESSURE ABNORMAL
     Dosage: 10 MG, UNK
  14. BENADRYL                           /00647601/ [Concomitant]
  15. ZYRTEC [Concomitant]
  16. MULTI-VIT [Concomitant]

REACTIONS (1)
  - Haemorrhagic disorder [Unknown]
